FAERS Safety Report 8557415-X (Version None)
Quarter: 2012Q3

REPORT INFORMATION
  Report Type: 
  Country: None (occurrence: None)
  Receive Date: 20120801
  Receipt Date: 20120712
  Transmission Date: 20120928
  Serious: Yes (Other)
  Sender: FDA-Public Use
  Company Number: JP-CELGENEUS-087-21660-12071230

PATIENT
  Age: 38 Year
  Sex: Female

DRUGS (6)
  1. ABRAXANE [Suspect]
     Indication: BREAST CANCER METASTATIC
     Dosage: 180 MILLIGRAM/SQ. METER
     Route: 041
     Dates: start: 20110118
  2. PROTECADIN [Concomitant]
     Dosage: 20 MILLIGRAM
     Route: 048
     Dates: start: 20110118, end: 20110228
  3. MELDEST [Concomitant]
     Dosage: 300 MILLIGRAM
     Route: 048
     Dates: start: 20110208, end: 20111003
  4. LYRICA [Concomitant]
     Dosage: 150-300 MG
     Route: 048
     Dates: start: 20111004, end: 20120701
  5. ABRAXANE [Suspect]
     Dosage: 180 MILLIGRAM/SQ. METER
     Route: 041
     Dates: start: 20120101
  6. ABRAXANE [Suspect]
     Dosage: 180 MILLIGRAM/SQ. METER
     Route: 041
     Dates: start: 20120101, end: 20120319

REACTIONS (1)
  - VIITH NERVE PARALYSIS [None]
